FAERS Safety Report 14165694 (Version 3)
Quarter: 2018Q1

REPORT INFORMATION
  Report Type: Spontaneous
  Country: CH (occurrence: CH)
  Receive Date: 20171107
  Receipt Date: 20180222
  Transmission Date: 20180508
  Serious: Yes (Disabling, Other)
  Sender: FDA-Public Use
  Company Number: CH-AMGEN-CHESP2017165593

PATIENT
  Age: 78 Year
  Sex: Female
  Weight: 67.1 kg

DRUGS (11)
  1. IRBESARTAN HCT [Concomitant]
     Active Substance: HYDROCHLOROTHIAZIDE\IRBESARTAN
     Dosage: 1 DF, BID
     Route: 048
  2. ZOLEDRONATE [Concomitant]
     Active Substance: ZOLEDRONIC ACID
     Dosage: 5 MG, UNK
     Route: 042
     Dates: start: 201706
  3. CALCIMAGON D3 [Concomitant]
     Active Substance: CALCIUM\CHOLECALCIFEROL
     Dosage: 1 DF, QD 500/800
     Route: 048
  4. DAFALGAN [Concomitant]
     Active Substance: ACETAMINOPHEN
     Route: 048
  5. IBANDRONATE [Concomitant]
     Active Substance: IBANDRONATE SODIUM
     Dosage: UNK
     Dates: start: 20170315
  6. PROLIA [Suspect]
     Active Substance: DENOSUMAB
     Indication: OSTEOPOROSIS POSTMENOPAUSAL
     Dosage: 60 MG, Q6MO
     Route: 058
     Dates: start: 2012, end: 201609
  7. ADALAT [Concomitant]
     Active Substance: NIFEDIPINE
     Route: 048
  8. BELOC ZOK [Concomitant]
     Active Substance: METOPROLOL SUCCINATE
     Dosage: 25 MG, QD
     Route: 048
  9. METAMUCIL [Concomitant]
     Active Substance: PLANTAGO SEED
     Dosage: 1 DF(1 TEASPOON), QD
     Route: 048
  10. SAROTEN RETARD [Concomitant]
     Active Substance: AMITRIPTYLINE
     Dosage: 1 DF, QD
     Route: 048
  11. ISCADOR [Concomitant]
     Active Substance: VISCUM ALBUM FRUITING TOP
     Dosage: 1 DF, 2 TIMES/WK

REACTIONS (3)
  - Lumbar vertebral fracture [Not Recovered/Not Resolved]
  - Rebound effect [Not Recovered/Not Resolved]
  - Bone density decreased [Not Recovered/Not Resolved]

NARRATIVE: CASE EVENT DATE: 2017
